FAERS Safety Report 4948038-X (Version None)
Quarter: 2006Q1

REPORT INFORMATION
  Report Type: 
  Country: None (occurrence: None)
  Receive Date: 20060320
  Receipt Date: 20050307
  Transmission Date: 20060701
  Serious: Yes (Hospitalization)
  Sender: FDA-Public Use
  Company Number: US-MERCK-0503USA01242

PATIENT
  Age: 73 Year
  Sex: Female
  Weight: 80 kg

DRUGS (3)
  1. VIOXX [Suspect]
     Indication: ARTHRALGIA
     Route: 048
     Dates: start: 20020701, end: 20031101
  2. SINGULAIR [Concomitant]
     Route: 065
  3. ASPIRIN [Concomitant]
     Route: 065

REACTIONS (10)
  - AORTIC THROMBOSIS [None]
  - ASTHENIA [None]
  - BREAST MICROCALCIFICATION [None]
  - CARDIOMYOPATHY [None]
  - CEREBROVASCULAR STENOSIS [None]
  - CHEST PAIN [None]
  - COLONIC POLYP [None]
  - HAEMORRHOIDAL HAEMORRHAGE [None]
  - OSTEOPOROSIS [None]
  - TRANSIENT ISCHAEMIC ATTACK [None]
